FAERS Safety Report 10024082 (Version 1)
Quarter: 2014Q1

REPORT INFORMATION
  Report Type: Spontaneous
  Country: US (occurrence: None)
  Receive Date: 20140304
  Receipt Date: 20140304
  Transmission Date: 20141002
  Serious: Yes (Other)
  Sender: FDA-Public Use
  Company Number: RB-59939-2013

PATIENT
  Age: 46 Year
  Sex: Female

DRUGS (2)
  1. SUBOXONE [Suspect]
     Indication: PRODUCT USED FOR UNKNOWN INDICATION
     Dosage: DOSE DETILS UNKNOWN, UNKNOWN, FILM, SUBOXONE DOSING DEAILS UNKNOWN UNKNOWN.
  2. SUBOXONE [Suspect]
     Indication: PRODUCT USED FOR UNKNOWN INDICATION
     Dosage: DOSE DETILS UNKNOWN, UNKNOWN, FILM, SUBOXONE DOSING DEAILS UNKNOWN UNKNOWN.

REACTIONS (6)
  - Throat tightness [None]
  - Cough [None]
  - Headache [None]
  - Vomiting [None]
  - Heart rate increased [None]
  - Feeling abnormal [None]
